FAERS Safety Report 9019281 (Version 1)
Quarter: 2013Q1

REPORT INFORMATION
  Report Type: Spontaneous
  Country: US (occurrence: US)
  Receive Date: 20130118
  Receipt Date: 20130118
  Transmission Date: 20140127
  Serious: Yes (Death)
  Sender: FDA-Public Use
  Company Number: US-ABBOTT-13P-163-1037172-00

PATIENT
  Age: 68 Year
  Sex: Female

DRUGS (10)
  1. ACETAMINOPHEN\HYDROCODONE [Suspect]
     Indication: PRODUCT USED FOR UNKNOWN INDICATION
  2. ACETAMINOPHEN\HYDROCODONE [Suspect]
     Route: 065
  3. VERAPAMIL [Suspect]
     Indication: PRODUCT USED FOR UNKNOWN INDICATION
  4. VERAPAMIL [Suspect]
     Route: 065
  5. FENTANYL [Suspect]
     Indication: PRODUCT USED FOR UNKNOWN INDICATION
  6. FENTANYL [Suspect]
     Route: 065
  7. CYCLOBENZAPRINE [Suspect]
     Indication: PRODUCT USED FOR UNKNOWN INDICATION
  8. CYCLOBENZAPRINE [Suspect]
     Route: 065
  9. LAXATIVE [Suspect]
     Indication: PRODUCT USED FOR UNKNOWN INDICATION
  10. LAXATIVE [Suspect]
     Route: 065

REACTIONS (2)
  - Intentional drug misuse [Fatal]
  - Drug abuse [None]
